FAERS Safety Report 4726214-9 (Version None)
Quarter: 2005Q3

REPORT INFORMATION
  Report Type: 
  Country: None (occurrence: None)
  Receive Date: 20050725
  Receipt Date: 20050622
  Transmission Date: 20060218
  Serious: No
  Sender: FDA-Public Use
  Company Number: 215576

PATIENT
  Age: 31 Year
  Sex: Male

DRUGS (1)
  1. MABTHERA (RITUXIMAB) CONC FOR SOLUTION FOR INFUSION [Suspect]

REACTIONS (2)
  - COELIAC DISEASE [None]
  - HYPOGAMMAGLOBULINAEMIA [None]
